FAERS Safety Report 26015259 (Version 1)
Quarter: 2025Q4

REPORT INFORMATION
  Report Type: Spontaneous
  Country: US (occurrence: US)
  Receive Date: 20251109
  Receipt Date: 20251109
  Transmission Date: 20260118
  Serious: No
  Sender: ELI LILLY AND COMPANY
  Company Number: US-ELI_LILLY_AND_COMPANY-US202510031646

PATIENT
  Age: 60 Year
  Sex: Female

DRUGS (4)
  1. ZEPBOUND [Suspect]
     Active Substance: TIRZEPATIDE
     Indication: Nausea
     Dosage: 2.5 MG, UNKNOWN
     Route: 065
     Dates: start: 20251024
  2. ZEPBOUND [Suspect]
     Active Substance: TIRZEPATIDE
     Indication: Nausea
     Dosage: 2.5 MG, UNKNOWN
     Route: 065
     Dates: start: 20251024
  3. ZEPBOUND [Suspect]
     Active Substance: TIRZEPATIDE
     Indication: Vomiting
  4. ZEPBOUND [Suspect]
     Active Substance: TIRZEPATIDE
     Indication: Vomiting

REACTIONS (2)
  - Off label use [Unknown]
  - Nausea [Not Recovered/Not Resolved]

NARRATIVE: CASE EVENT DATE: 20251024
